FAERS Safety Report 13984560 (Version 6)
Quarter: 2018Q2

REPORT INFORMATION
  Report Type: Spontaneous
  Country: AT (occurrence: AT)
  Receive Date: 20170918
  Receipt Date: 20180627
  Transmission Date: 20180711
  Serious: Yes (Death, Life-Threatening, Hospitalization, Other)
  Sender: FDA-Public Use
  Company Number: PHHY2017AT137108

PATIENT
  Age: 71 Year
  Sex: Male

DRUGS (11)
  1. INSULIN ASPART PROTAMINE [Concomitant]
     Indication: DIABETES MELLITUS
     Dosage: 16 IU, QD (IN MORNING)
     Route: 065
  2. CANAGLIFLOZIN [Suspect]
     Active Substance: CANAGLIFLOZIN
     Indication: TYPE 2 DIABETES MELLITUS
     Route: 065
  3. PANTOPRAZOLE [Concomitant]
     Active Substance: PANTOPRAZOLE
     Indication: PRODUCT USED FOR UNKNOWN INDICATION
     Route: 065
  4. INSULIN ASPART PROTAMINE [Concomitant]
     Dosage: 12 IU, QHS
     Route: 065
  5. INSULIN ASPART [Concomitant]
     Active Substance: INSULIN ASPART
     Indication: TYPE 2 DIABETES MELLITUS
  6. ALLOPURINOL. [Concomitant]
     Active Substance: ALLOPURINOL
     Indication: PRODUCT USED FOR UNKNOWN INDICATION
     Route: 065
  7. TORASEMID [Concomitant]
     Active Substance: TORSEMIDE
     Indication: PRODUCT USED FOR UNKNOWN INDICATION
     Route: 065
  8. INSULIN ASPART [Concomitant]
     Active Substance: INSULIN ASPART
     Indication: DIABETES MELLITUS
     Dosage: 16-0-12 IU
     Route: 065
  9. LIRAGLUTIDE [Concomitant]
     Active Substance: LIRAGLUTIDE
     Indication: PRODUCT USED FOR UNKNOWN INDICATION
     Route: 065
  10. METFORMIN [Suspect]
     Active Substance: METFORMIN HYDROCHLORIDE
     Indication: DIABETES MELLITUS
     Dosage: 850 MG, BID
     Route: 065
  11. ENALAPRIL [Concomitant]
     Active Substance: ENALAPRIL
     Indication: PRODUCT USED FOR UNKNOWN INDICATION
     Route: 065

REACTIONS (17)
  - Kussmaul respiration [Fatal]
  - Pneumonia [Fatal]
  - Acute kidney injury [Fatal]
  - Blood lactic acid increased [Recovered/Resolved]
  - Vomiting [Fatal]
  - Hyperventilation [Recovered/Resolved]
  - Diabetic ketoacidosis [Fatal]
  - Base excess decreased [Recovered/Resolved]
  - Blood bicarbonate decreased [Recovered/Resolved]
  - PCO2 decreased [Recovered/Resolved]
  - Lactic acidosis [Fatal]
  - Nausea [Fatal]
  - Anion gap increased [Recovered/Resolved]
  - Blood pH decreased [Recovered/Resolved]
  - Somnolence [Fatal]
  - Body temperature decreased [Recovered/Resolved]
  - Hypotension [Recovered/Resolved]
